FAERS Safety Report 8259249-2 (Version None)
Quarter: 2012Q2

REPORT INFORMATION
  Report Type: 
  Country: None (occurrence: None)
  Receive Date: 20120404
  Receipt Date: 20120327
  Transmission Date: 20120825
  Serious: Yes (Other)
  Sender: FDA-Public Use
  Company Number: US-ASTRAZENECA-2012SE10720

PATIENT
  Age: 53 Year
  Sex: Female

DRUGS (3)
  1. PULMICORT FLEXHALER [Suspect]
     Route: 055
  2. ALBUTEROL [Concomitant]
  3. ARIMIDEX [Concomitant]
     Route: 048

REACTIONS (4)
  - INTENTIONAL DRUG MISUSE [None]
  - BREAST CANCER [None]
  - NEUROPATHY PERIPHERAL [None]
  - IMPAIRED WORK ABILITY [None]
